FAERS Safety Report 5973982-4 (Version None)
Quarter: 2008Q4

REPORT INFORMATION
  Report Type: 
  Country: None (occurrence: None)
  Receive Date: 20081201
  Receipt Date: 20080918
  Transmission Date: 20090506
  Serious: No
  Sender: FDA-Public Use
  Company Number: US-AMGEN-KDL295655

PATIENT
  Sex: Female

DRUGS (4)
  1. ENBREL [Suspect]
     Indication: PSORIATIC ARTHROPATHY
     Route: 058
     Dates: start: 20020101, end: 20070101
  2. ENBREL [Suspect]
     Indication: PSORIASIS
  3. ADVIL [Concomitant]
  4. VITAMIN TAB [Concomitant]

REACTIONS (4)
  - BLOOD PRESSURE INCREASED [None]
  - MIGRAINE [None]
  - PSORIASIS [None]
  - PSORIATIC ARTHROPATHY [None]
